FAERS Safety Report 11021145 (Version 1)
Quarter: 2015Q2

REPORT INFORMATION
  Report Type: Report from Study
  Country: VE (occurrence: VE)
  Receive Date: 20150413
  Receipt Date: 20150413
  Transmission Date: 20150821
  Serious: Yes (Death)
  Sender: FDA-Public Use
  Company Number: VE-SA-2015SA046609

PATIENT
  Age: 61 Year
  Sex: Male

DRUGS (3)
  1. BENICAR [Concomitant]
     Active Substance: OLMESARTAN MEDOXOMIL
     Indication: HYPERTENSION
     Dosage: DOSE AND DAILY DOSE: 40/12.5MG
     Route: 048
     Dates: start: 201205, end: 20131103
  2. AMARYL M [Suspect]
     Active Substance: GLIMEPIRIDE\METFORMIN
     Indication: DIABETES MELLITUS
     Route: 048
     Dates: start: 201205, end: 20131103
  3. CLOPIDOGREL [Concomitant]
     Active Substance: CLOPIDOGREL BISULFATE
     Route: 048
     Dates: start: 201205, end: 20131103

REACTIONS (3)
  - Cerebrovascular accident [Fatal]
  - Respiratory arrest [Fatal]
  - Seizure [Fatal]

NARRATIVE: CASE EVENT DATE: 20131103
